FAERS Safety Report 16402209 (Version 2)
Quarter: 2019Q3

REPORT INFORMATION
  Report Type: Spontaneous
  Country: AU (occurrence: AU)
  Receive Date: 20190607
  Receipt Date: 20190722
  Transmission Date: 20191004
  Serious: Yes (Death, Other)
  Sender: FDA-Public Use
  Company Number: AU-ASTRAZENECA-2019SE82987

PATIENT
  Age: 28689 Day

DRUGS (3)
  1. AMIODARONE [Concomitant]
     Active Substance: AMIODARONE
     Indication: ATRIAL FIBRILLATION
     Route: 048
     Dates: start: 20190507
  2. DURVALUMAB. [Suspect]
     Active Substance: DURVALUMAB
     Indication: LUNG CARCINOMA CELL TYPE UNSPECIFIED STAGE III
     Route: 042
     Dates: start: 20180824, end: 20190323
  3. BACTRIM [Suspect]
     Active Substance: SULFAMETHOXAZOLE\TRIMETHOPRIM
     Indication: PROPHYLAXIS
     Dosage: THREE TIMES WEEKLY
     Route: 048
     Dates: start: 201902, end: 201905

REACTIONS (4)
  - Pneumonia [Fatal]
  - Stevens-Johnson syndrome [Unknown]
  - Malignant neoplasm progression [Fatal]
  - Superior vena cava occlusion [Fatal]

NARRATIVE: CASE EVENT DATE: 20190507
